FAERS Safety Report 15461234 (Version 2)
Quarter: 2025Q1

REPORT INFORMATION
  Report Type: Spontaneous
  Country: ES (occurrence: ES)
  Receive Date: 20181003
  Receipt Date: 20250310
  Transmission Date: 20250408
  Serious: Yes (Other)
  Sender: MYLAN
  Company Number: ES-SUN PHARMACEUTICAL INDUSTRIES LTD-2018RR-171822

PATIENT

DRUGS (1)
  1. IMATINIB [Suspect]
     Active Substance: IMATINIB
     Indication: Graft versus host disease

REACTIONS (1)
  - Therapeutic product effect incomplete [Unknown]
